FAERS Safety Report 5822477-7 (Version None)
Quarter: 2008Q3

REPORT INFORMATION
  Report Type: 
  Country: None (occurrence: None)
  Receive Date: 20080725
  Receipt Date: 20080716
  Transmission Date: 20090109
  Serious: Yes (Other)
  Sender: FDA-Public Use
  Company Number: FR-JNJFOC-20080704374

PATIENT
  Age: 50 Year
  Sex: Female

DRUGS (3)
  1. REMICADE [Suspect]
     Route: 042
  2. REMICADE [Suspect]
     Indication: CROHN'S DISEASE
     Route: 042
  3. HUMIRA [Concomitant]
     Indication: CROHN'S DISEASE

REACTIONS (3)
  - BREAST CANCER [None]
  - HYPERSENSITIVITY [None]
  - INFUSION RELATED REACTION [None]
